FAERS Safety Report 19266550 (Version 1)
Quarter: 2021Q2

REPORT INFORMATION
  Report Type: Spontaneous
  Country: US (occurrence: US)
  Receive Date: 20210518
  Receipt Date: 20210518
  Transmission Date: 20210717
  Serious: No
  Sender: FDA-Public Use
  Company Number: US-CELLTRION INC.-2021US003904

PATIENT

DRUGS (14)
  1. TRUXIMA [Suspect]
     Active Substance: RITUXIMAB-ABBS
     Dosage: 800 MG
     Route: 042
     Dates: start: 20200902
  2. PREDNISONE. [Concomitant]
     Active Substance: PREDNISONE
     Indication: GRANULOMATOSIS WITH POLYANGIITIS
     Dosage: 3 TABLETS OF 20 MG, DAILY
     Route: 048
  3. PREDNISONE. [Concomitant]
     Active Substance: PREDNISONE
     Dosage: 5 TABLETS OF 1 MG, DAILY (DECREASE BY 1 MG, EVERY 2 WEEKS)
     Route: 048
  4. BACTRIM DS [Concomitant]
     Active Substance: SULFAMETHOXAZOLE\TRIMETHOPRIM
     Indication: ARTHRITIS
     Dosage: 800 MG?160 MG TABLET, ON MONDAY WEDNESDAY, AND FRIDAY EVERY WEEK
     Route: 048
  5. TRUXIMA [Suspect]
     Active Substance: RITUXIMAB-ABBS
     Indication: GRANULOMATOSIS WITH POLYANGIITIS
     Dosage: 375 MG/KG, 1ST DOSE (PROXIMAL IMA)
  6. ALENDRONATE [Concomitant]
     Active Substance: ALENDRONATE SODIUM
     Indication: STEROID THERAPY
     Dosage: 70 MG, EVERY WEEK
     Route: 048
  7. TRUXIMA [Suspect]
     Active Substance: RITUXIMAB-ABBS
     Dosage: 500 MG
     Route: 042
     Dates: start: 20210329
  8. PREDNISONE. [Concomitant]
     Active Substance: PREDNISONE
     Indication: INTERSTITIAL LUNG DISEASE
     Dosage: 4 TABLETS OF 1 MG, DAILY (DECREASE BY 1 MG, EVERY 2 WEEKS)
     Route: 048
  9. OMEPRAZOLE. [Concomitant]
     Active Substance: OMEPRAZOLE
     Indication: ARTHRITIS
     Dosage: 20 MG, DAILY
     Route: 048
  10. TRUXIMA [Suspect]
     Active Substance: RITUXIMAB-ABBS
     Dosage: PRESCRIBED WAS 500 MG, EVERY 6 MONTHS BUT ONLY RECEIVED 100 MG DUE TO THE INFUSION REACTION
     Route: 042
     Dates: start: 20210316
  11. TRUXIMA [Suspect]
     Active Substance: RITUXIMAB-ABBS
     Dosage: 1000 MG
     Route: 042
     Dates: start: 20200827
  12. TRUXIMA [Suspect]
     Active Substance: RITUXIMAB-ABBS
     Dosage: 800 MG
     Route: 042
     Dates: start: 20200909
  13. TRUXIMA [Suspect]
     Active Substance: RITUXIMAB-ABBS
     Dosage: 800 MG
     Route: 042
     Dates: start: 20200916
  14. LISINOPRIL. [Concomitant]
     Active Substance: LISINOPRIL
     Dosage: 5 MG, DAILY
     Route: 048

REACTIONS (1)
  - Infusion related reaction [Unknown]

NARRATIVE: CASE EVENT DATE: 20210316
